FAERS Safety Report 9543789 (Version 3)
Quarter: 2013Q4

REPORT INFORMATION
  Report Type: Spontaneous
  Country: IT (occurrence: IT)
  Receive Date: 20130923
  Receipt Date: 20131015
  Transmission Date: 20140711
  Serious: Yes (Other)
  Sender: FDA-Public Use
  Company Number: PHHY2013IT103571

PATIENT
  Age: 49 Year
  Sex: Male

DRUGS (4)
  1. SIGNIFOR [Suspect]
     Indication: PITUITARY-DEPENDENT CUSHING^S SYNDROME
     Dosage: 2 DF, DAILY
     Dates: start: 20130614
  2. SIGNIFOR [Suspect]
     Dosage: 0.3 MG, DAILY
  3. METFORMIN [Concomitant]
     Indication: DIABETES MELLITUS
  4. REPAGLINIDE [Concomitant]
     Indication: DIABETES MELLITUS

REACTIONS (3)
  - Diabetes mellitus inadequate control [Recovered/Resolved]
  - Abdominal pain [Recovered/Resolved]
  - Diarrhoea [Recovered/Resolved]
